FAERS Safety Report 7356850 (Version 2)
Quarter: 2015Q1

REPORT INFORMATION
  Report Type: Spontaneous
  Country: BE (occurrence: None)
  Receive Date: 20100331
  Receipt Date: 20150105
  Transmission Date: 20150721
  Serious: Yes (Hospitalization)
  Sender: FDA-Public Use
  Company Number: 2010000913

PATIENT
  Age: 65 Year
  Sex: Female

DRUGS (7)
  1. GLUCOSE OXIDASE [Concomitant]
     Active Substance: GLUCOSE OXIDASE
  2. EFFORTIL [Concomitant]
     Active Substance: ETILEFRINE HYDROCHLORIDE
  3. NEXIUM [Concomitant]
     Active Substance: ESOMEPRAZOLE MAGNESIUM
  4. RO 4858696 (IGF-1R ANTAGONIST) [Suspect]
     Active Substance: TEPROTUMUMAB
     Indication: NON-SMALL CELL LUNG CANCER
     Dosage: 16MG/KG EVERY 3 WEEKS INTRAVENOUS
     Route: 042
     Dates: start: 20090302
  5. DUOVENT [Concomitant]
     Active Substance: FENOTEROL HYDROBROMIDE
  6. MEDROL [Concomitant]
     Active Substance: METHYLPREDNISOLONE
  7. ERLOTINIB [Suspect]
     Active Substance: ERLOTINIB
     Indication: NON-SMALL CELL LUNG CANCER
     Dosage: (150 MG,QD), ORAL
     Route: 048
     Dates: start: 20090302

REACTIONS (6)
  - General physical health deterioration [None]
  - Blood potassium decreased [None]
  - Ataxia [None]
  - Fungal skin infection [None]
  - Blood albumin decreased [None]
  - Pain [None]

NARRATIVE: CASE EVENT DATE: 20090520
